FAERS Safety Report 7345711-3 (Version None)
Quarter: 2011Q1

REPORT INFORMATION
  Report Type: 
  Country: None (occurrence: None)
  Receive Date: 20110310
  Receipt Date: 20110302
  Transmission Date: 20110831
  Serious: Yes (Disabling)
  Sender: FDA-Public Use
  Company Number: BR-BRISTOL-MYERS SQUIBB COMPANY-15588585

PATIENT
  Age: 53 Year
  Sex: Female
  Weight: 68 kg

DRUGS (1)
  1. APROZIDE [Suspect]
     Indication: HYPERTENSION
     Dosage: 1 DF:1 TABS 300MG TABS STRATED MANY YEARS AGO
     Dates: end: 20110201

REACTIONS (1)
  - DENGUE FEVER [None]
